FAERS Safety Report 21312695 (Version 1)
Quarter: 2022Q3

REPORT INFORMATION
  Report Type: Spontaneous
  Country: DE (occurrence: DE)
  Receive Date: 20220909
  Receipt Date: 20220909
  Transmission Date: 20221027
  Serious: Yes (Hospitalization, Disabling)
  Sender: FDA-Public Use
  Company Number: None

PATIENT
  Age: 43 Year
  Sex: Female

DRUGS (12)
  1. DEXPANTHENOL [Suspect]
     Active Substance: DEXPANTHENOL
     Indication: Retinal artery occlusion
     Dosage: 0.25 DAY
     Route: 065
  2. PANTOPRAZOLE [Suspect]
     Active Substance: PANTOPRAZOLE
     Indication: Retinal artery occlusion
     Dosage: 40 MG, QD
     Route: 065
  3. PREDNISOLONE [Suspect]
     Active Substance: PREDNISOLONE
     Indication: Retinal artery occlusion
     Dosage: 10 MG/ML, BID (DOSE REDUCED)
     Route: 065
  4. PREDNISONE [Suspect]
     Active Substance: PREDNISONE
     Indication: Retinal artery occlusion
     Dosage: 90 MG
     Route: 065
  5. TINZAPARIN SODIUM [Suspect]
     Active Substance: TINZAPARIN SODIUM
     Indication: Retinal artery occlusion
     Dosage: 4.500IE
     Route: 065
  6. HYALURONIC ACID [Suspect]
     Active Substance: HYALURONIC ACID
     Indication: Dermal filler injection
     Dosage: 0.7 ML, GLABELLAR INJECTION
     Route: 065
  7. METHYLPREDNISOLONE [Suspect]
     Active Substance: METHYLPREDNISOLONE
     Indication: Retinal artery occlusion
     Dosage: 100 MG, QD
     Route: 065
  8. OFLOXACIN [Suspect]
     Active Substance: OFLOXACIN
     Indication: Retinal artery occlusion
     Dosage: 3 MILLIGRAM PER GRAM DOSE REDUCED, TID
     Route: 065
  9. ASPIRIN [Suspect]
     Active Substance: ASPIRIN
     Indication: Retinal artery occlusion
     Dosage: 100 MG, QD
     Route: 065
  10. ATROPINE [Suspect]
     Active Substance: ATROPINE
     Indication: Retinal artery occlusion
     Dosage: QD (DOSE REDUCED)
     Route: 065
  11. CLINDAMYCIN [Suspect]
     Active Substance: CLINDAMYCIN
     Indication: Retinal artery occlusion
     Dosage: 300 MG, 0.25 D
     Route: 065
  12. DEXAMETHASONE [Concomitant]
     Active Substance: DEXAMETHASONE
     Indication: Retinal artery occlusion
     Dosage: 1 MG/ML, QD
     Route: 065

REACTIONS (10)
  - Madarosis [Not Recovered/Not Resolved]
  - Blindness [Not Recovered/Not Resolved]
  - Lagophthalmos [Not Recovered/Not Resolved]
  - Hypotonia [Not Recovered/Not Resolved]
  - Skin lesion [Not Recovered/Not Resolved]
  - Retinal degeneration [Not Recovered/Not Resolved]
  - Strabismus [Not Recovered/Not Resolved]
  - Drug ineffective [Unknown]
  - Anterior segment ischaemia [Not Recovered/Not Resolved]
  - Off label use [Unknown]
